FAERS Safety Report 13499087 (Version 1)
Quarter: 2017Q2

REPORT INFORMATION
  Report Type: Spontaneous
  Country: US (occurrence: US)
  Receive Date: 20170428
  Receipt Date: 20170428
  Transmission Date: 20170830
  Serious: No
  Sender: FDA-Public Use
  Company Number: None

PATIENT
  Age: 55 Year
  Sex: Female

DRUGS (1)
  1. BOTOX [Suspect]
     Active Substance: ONABOTULINUMTOXINA
     Indication: MIGRAINE
     Dosage: 200 UNITS EVERY 90 DAYS IM
     Route: 030
     Dates: start: 20170207

REACTIONS (2)
  - Paralysis [None]
  - Therapy non-responder [None]

NARRATIVE: CASE EVENT DATE: 20170207
